FAERS Safety Report 7513467-7 (Version None)
Quarter: 2011Q2

REPORT INFORMATION
  Report Type: 
  Country: None (occurrence: None)
  Receive Date: 20110526
  Receipt Date: 20110526
  Transmission Date: 20111010
  Serious: Yes (Other)
  Sender: FDA-Public Use
  Company Number: None

PATIENT
  Age: 71 Year
  Sex: Male
  Weight: 102.0593 kg

DRUGS (2)
  1. BENZONATATE [Suspect]
     Dosage: 1 CAPSULE 3 TIMES A DAY MOUTH 4-23 - 4-24
     Route: 048
  2. AZITHROMYCIN [Suspect]
     Dosage: 10MGC A DAY FOR 3 DAYS MOUTH 4-12-4 24
     Route: 048

REACTIONS (3)
  - SWELLING [None]
  - PRURITUS [None]
  - RASH GENERALISED [None]
